FAERS Safety Report 25565343 (Version 1)
Quarter: 2025Q3

REPORT INFORMATION
  Report Type: Spontaneous
  Country: US (occurrence: US)
  Receive Date: 20250716
  Receipt Date: 20250716
  Transmission Date: 20251021
  Serious: No
  Sender: NOVO NORDISK
  Company Number: US-NOVOPROD-1361287

PATIENT
  Sex: Male

DRUGS (1)
  1. OZEMPIC [Suspect]
     Active Substance: SEMAGLUTIDE
     Indication: Product used for unknown indication
     Route: 058
     Dates: start: 20250103

REACTIONS (4)
  - Arthritis [Recovered/Resolved]
  - Nausea [Unknown]
  - Fatigue [Recovering/Resolving]
  - Diarrhoea [Recovered/Resolved]
